FAERS Safety Report 11646229 (Version 2)
Quarter: 2016Q2

REPORT INFORMATION
  Report Type: Spontaneous
  Country: US (occurrence: US)
  Receive Date: 20151020
  Receipt Date: 20160504
  Transmission Date: 20160815
  Serious: No
  Sender: FDA-Public Use
  Company Number: US-ROCHE-ITM201506IM017978

PATIENT
  Age: 76 Year
  Sex: Male

DRUGS (10)
  1. PIRFENIDONE [Suspect]
     Active Substance: PIRFENIDONE
     Dosage: 3 CAPSULES THREE TIMES DAILY
     Route: 048
     Dates: start: 20150301
  2. NORVASC [Concomitant]
     Active Substance: AMLODIPINE BESYLATE
  3. PIRFENIDONE [Suspect]
     Active Substance: PIRFENIDONE
     Indication: IDIOPATHIC PULMONARY FIBROSIS
     Dosage: 9 CAPSULES PER DAY
     Route: 048
  4. PIRFENIDONE [Suspect]
     Active Substance: PIRFENIDONE
     Dosage: (9 CAPSULES DAILY; TOTAL DAILY DOSE: 2403 MG)
     Route: 048
     Dates: start: 20150320
  5. LORAZEPAM. [Concomitant]
     Active Substance: LORAZEPAM
  6. ZETIA [Concomitant]
     Active Substance: EZETIMIBE
  7. CRESTOR [Concomitant]
     Active Substance: ROSUVASTATIN CALCIUM
  8. VALSARTAN HCTZ [Concomitant]
     Active Substance: HYDROCHLOROTHIAZIDE\VALSARTAN
  9. ASPIRIN. [Concomitant]
     Active Substance: ASPIRIN
  10. PLAVIX [Concomitant]
     Active Substance: CLOPIDOGREL BISULFATE

REACTIONS (13)
  - Hyperhidrosis [Unknown]
  - Gastrointestinal disorder [Unknown]
  - Intentional product misuse [Unknown]
  - Dizziness [Recovered/Resolved with Sequelae]
  - Product quality issue [Unknown]
  - Nausea [Unknown]
  - Gastric disorder [Recovered/Resolved with Sequelae]
  - Urticaria [Not Recovered/Not Resolved]
  - Pruritus [Not Recovered/Not Resolved]
  - Rash pruritic [Not Recovered/Not Resolved]
  - Fatigue [Unknown]
  - Cold sweat [Unknown]
  - Medication error [Unknown]
